FAERS Safety Report 18245879 (Version 1)
Quarter: 2020Q3

REPORT INFORMATION
  Report Type: Report from Study
  Country: EG (occurrence: EG)
  Receive Date: 20200909
  Receipt Date: 20200909
  Transmission Date: 20201103
  Serious: Yes (Other)
  Sender: FDA-Public Use
  Company Number: NVSC2020EG243454

PATIENT
  Age: 41 Year
  Sex: Female

DRUGS (2)
  1. TASIGNA [Suspect]
     Active Substance: NILOTINIB
     Indication: CHRONIC MYELOID LEUKAEMIA
     Dosage: 800 MG, QD
     Route: 065
  2. TASIGNA [Suspect]
     Active Substance: NILOTINIB
     Dosage: 400 MG, QD
     Route: 065

REACTIONS (12)
  - Disturbance in attention [Not Recovered/Not Resolved]
  - Anaemia [Not Recovered/Not Resolved]
  - Helicobacter infection [Not Recovered/Not Resolved]
  - Hot flush [Not Recovered/Not Resolved]
  - Mobility decreased [Not Recovered/Not Resolved]
  - White blood cell count decreased [Not Recovered/Not Resolved]
  - Screaming [Not Recovered/Not Resolved]
  - Headache [Not Recovered/Not Resolved]
  - Restlessness [Not Recovered/Not Resolved]
  - Vision blurred [Not Recovered/Not Resolved]
  - Lethargy [Not Recovered/Not Resolved]
  - Uterine haemorrhage [Not Recovered/Not Resolved]

NARRATIVE: CASE EVENT DATE: 202005
